FAERS Safety Report 10459837 (Version 2)
Quarter: 2014Q4

REPORT INFORMATION
  Report Type: Spontaneous
  Country: US (occurrence: US)
  Receive Date: 20140917
  Receipt Date: 20141030
  Transmission Date: 20150528
  Serious: Yes (Other)
  Sender: FDA-Public Use
  Company Number: US-BAYER-2014-134893

PATIENT
  Age: 30 Year
  Sex: Female
  Weight: 56.69 kg

DRUGS (1)
  1. MIRENA [Suspect]
     Active Substance: LEVONORGESTREL
     Indication: CONTRACEPTION
     Dosage: 20 MCG/24HR, CONT
     Route: 015
     Dates: start: 20140618, end: 20140624

REACTIONS (5)
  - Uterine perforation [None]
  - Device dislocation [None]
  - Post procedural haemorrhage [None]
  - Procedural pain [None]
  - Abdominal pain [None]

NARRATIVE: CASE EVENT DATE: 201406
